FAERS Safety Report 16410424 (Version 3)
Quarter: 2019Q3

REPORT INFORMATION
  Report Type: Spontaneous
  Country: US (occurrence: US)
  Receive Date: 20190610
  Receipt Date: 20190711
  Transmission Date: 20191004
  Serious: No
  Sender: FDA-Public Use
  Company Number: US-PFIZER INC-2019238710

PATIENT
  Age: 42 Year
  Sex: Male

DRUGS (5)
  1. SKELAXIN [Suspect]
     Active Substance: METAXALONE
     Indication: MUSCULOSKELETAL DISCOMFORT
  2. SKELAXIN [Suspect]
     Active Substance: METAXALONE
     Indication: MUSCLE SPASMS
  3. PERCOCET [Concomitant]
     Active Substance: ACETAMINOPHEN\OXYCODONE HYDROCHLORIDE
     Indication: PAIN
     Dosage: UNK
     Dates: start: 20181019
  4. SKELAXIN [Suspect]
     Active Substance: METAXALONE
     Indication: BACK PAIN
     Dosage: 800 MG, AS NEEDED (1 TABLET UP TO 3 TIMES A DAY)
     Route: 048
  5. PERCOCET [Concomitant]
     Active Substance: ACETAMINOPHEN\OXYCODONE HYDROCHLORIDE
     Dosage: UNK, AS NEEDED (QD (ONCE A DAY) PRN (AS NEEDED)
     Dates: start: 20190624

REACTIONS (3)
  - Sensitivity to weather change [Unknown]
  - Condition aggravated [Unknown]
  - Drug ineffective [Unknown]
